FAERS Safety Report 18626655 (Version 1)
Quarter: 2020Q4

REPORT INFORMATION
  Report Type: Report from Study
  Country: CA (occurrence: CA)
  Receive Date: 20201217
  Receipt Date: 20201217
  Transmission Date: 20210114
  Serious: Yes (Hospitalization, Other)
  Sender: FDA-Public Use
  Company Number: CA-REGENERON PHARMACEUTICALS, INC.-2020-93175

PATIENT

DRUGS (1)
  1. EYLEA [Suspect]
     Active Substance: AFLIBERCEPT
     Indication: DIABETIC RETINAL OEDEMA
     Dosage: TOTAL DOSE OF EYLEA PRIOR TO THE EVENT IS UNK. DATE OF LAST DOSE OF EYLEA PRIOR TO THE EVENT IS UNK.
     Dates: start: 20200519

REACTIONS (2)
  - Hospitalisation [Unknown]
  - Dialysis [Unknown]

NARRATIVE: CASE EVENT DATE: 202011
